FAERS Safety Report 8535636-X (Version None)
Quarter: 2012Q3

REPORT INFORMATION
  Report Type: 
  Country: None (occurrence: None)
  Receive Date: 20120725
  Receipt Date: 20120717
  Transmission Date: 20120928
  Serious: Yes (Other)
  Sender: FDA-Public Use
  Company Number: US-PFIZER INC-2012154805

PATIENT
  Sex: Male
  Weight: 78.9 kg

DRUGS (6)
  1. LYRICA [Suspect]
     Dosage: 200 MG, 2X/DAY (TAKE 1 CAPSULE BY MOUTH 2 TIMES DAILY)
     Route: 048
     Dates: start: 20120627
  2. EFFEXOR XR [Suspect]
     Dosage: 75 MG, UNK
  3. NORCO [Concomitant]
     Dosage: UNK
  4. LYRICA [Suspect]
     Dosage: 200 MG, 2X/DAY
     Route: 048
     Dates: start: 20120502, end: 20120627
  5. CYMBALTA [Concomitant]
     Dosage: UNK
  6. LYRICA [Suspect]
     Indication: PERIPHERAL NERVE INJURY
     Dosage: 300 MG, 2X/DAY
     Dates: start: 20070101

REACTIONS (6)
  - NEUROPATHY PERIPHERAL [None]
  - PAIN IN EXTREMITY [None]
  - ARTHRALGIA [None]
  - DEPRESSION [None]
  - HYPOAESTHESIA [None]
  - PARAESTHESIA [None]
